FAERS Safety Report 11269979 (Version 7)
Quarter: 2021Q2

REPORT INFORMATION
  Report Type: Report from Study
  Country: FR (occurrence: FR)
  Receive Date: 20150714
  Receipt Date: 20210506
  Transmission Date: 20210716
  Serious: Yes (Hospitalization)
  Sender: FDA-Public Use
  Company Number: FR-ROCHE-1594639

PATIENT
  Age: 73 Year
  Sex: Female
  Weight: 73 kg

DRUGS (5)
  1. LENALIDOMIDE [Suspect]
     Active Substance: LENALIDOMIDE
     Indication: DIFFUSE LARGE B-CELL LYMPHOMA
     Dosage: DATE OF LAST DOSE PRIOR TO 1ST EPISODE OF PNEUMOPATHY: 14/MAY/2015?DATE OF LAST DOSE PRIOR TO 2ND EP
     Route: 065
     Dates: start: 20141118, end: 20150629
  2. AERUS [Concomitant]
     Dosage: ANTIHISTAMINE
     Dates: start: 20150113
  3. ASPEGIC [Concomitant]
     Dates: start: 20141118
  4. BACTRIM [Concomitant]
     Active Substance: SULFAMETHOXAZOLE\TRIMETHOPRIM
     Route: 065
     Dates: start: 20150326
  5. OBINUTUZUMAB. [Suspect]
     Active Substance: OBINUTUZUMAB
     Indication: DIFFUSE LARGE B-CELL LYMPHOMA
     Dosage: DATE OF LAST DOSE PRIOR TO 1ST EPISODE OF PNEUMOPATHY: 23/APR/2015?DATE OF LAST DOSE PRIOR TO 2ND EP
     Route: 042
     Dates: start: 20141125, end: 20150608

REACTIONS (2)
  - Pneumonia pseudomonal [Recovered/Resolved]
  - Lung disorder [Recovered/Resolved]

NARRATIVE: CASE EVENT DATE: 201504
